FAERS Safety Report 11989597 (Version 4)
Quarter: 2016Q2

REPORT INFORMATION
  Report Type: Report from Study
  Country: US (occurrence: US)
  Receive Date: 20160202
  Receipt Date: 20160427
  Transmission Date: 20160815
  Serious: No
  Sender: FDA-Public Use
  Company Number: GXBR2016US000487

PATIENT
  Sex: Male

DRUGS (5)
  1. CLONIDINE. [Concomitant]
     Active Substance: CLONIDINE
     Indication: PRODUCT USED FOR UNKNOWN INDICATION
     Dosage: 0.1 MG, QD
     Route: 048
  2. ADDERALL [Concomitant]
     Active Substance: AMPHETAMINE ASPARTATE\AMPHETAMINE SULFATE\DEXTROAMPHETAMINE SACCHARATE\DEXTROAMPHETAMINE SULFATE
     Indication: ATTENTION DEFICIT/HYPERACTIVITY DISORDER
     Dosage: 30 MG, QD
     Route: 048
  3. OMNITROPE [Suspect]
     Active Substance: SOMATROPIN
     Indication: SMALL FOR DATES BABY
     Dosage: 1.3 MG, QD
     Route: 065
     Dates: start: 20151224
  4. FELBAMATE. [Concomitant]
     Active Substance: FELBAMATE
     Indication: CONVULSION PROPHYLAXIS
     Dosage: 3 ML, BID
     Route: 048
  5. LAMOTRIGINE. [Concomitant]
     Active Substance: LAMOTRIGINE
     Indication: CONVULSION PROPHYLAXIS
     Dosage: 100 MG, BID
     Route: 048

REACTIONS (12)
  - Skin infection [Not Recovered/Not Resolved]
  - Red cell distribution width abnormal [Not Recovered/Not Resolved]
  - Microcytosis [Not Recovered/Not Resolved]
  - Incorrect dose administered by device [Not Recovered/Not Resolved]
  - Haemoglobin abnormal [Not Recovered/Not Resolved]
  - Monocyte count abnormal [Not Recovered/Not Resolved]
  - Mean cell volume abnormal [Not Recovered/Not Resolved]
  - Reticulocyte count abnormal [Not Recovered/Not Resolved]
  - Neutrophil count abnormal [Not Recovered/Not Resolved]
  - Haematocrit abnormal [Not Recovered/Not Resolved]
  - Lymphocyte count abnormal [Not Recovered/Not Resolved]
  - Hypochromasia [Not Recovered/Not Resolved]
